FAERS Safety Report 22221256 (Version 1)
Quarter: 2023Q2

REPORT INFORMATION
  Report Type: Other
  Country: AU (occurrence: AU)
  Receive Date: 20230418
  Receipt Date: 20230418
  Transmission Date: 20230721
  Serious: Yes (Other)
  Sender: FDA-Public Use
  Company Number: AU-CELLTRION INC.-2023AU007831

PATIENT

DRUGS (11)
  1. RITUXIMAB [Suspect]
     Active Substance: RITUXIMAB
     Indication: Product used for unknown indication
  2. CYCLOPHOSPHAMIDE [Suspect]
     Active Substance: CYCLOPHOSPHAMIDE
     Indication: Product used for unknown indication
  3. DOXORUBICIN HYDROCHLORIDE [Suspect]
     Active Substance: DOXORUBICIN HYDROCHLORIDE
     Indication: Product used for unknown indication
  4. FILGRASTIM [Suspect]
     Active Substance: FILGRASTIM
     Indication: Product used for unknown indication
  5. CARBOPLATIN [Suspect]
     Active Substance: CARBOPLATIN
     Indication: Product used for unknown indication
  6. ETOPOSIDE [Suspect]
     Active Substance: ETOPOSIDE
     Indication: Product used for unknown indication
  7. IFOSFAMIDE [Suspect]
     Active Substance: IFOSFAMIDE
     Indication: Product used for unknown indication
  8. MESNA [Suspect]
     Active Substance: MESNA
     Indication: Product used for unknown indication
  9. PREDNISOLONE [Suspect]
     Active Substance: PREDNISOLONE
     Indication: Product used for unknown indication
  10. VINCRISTINE SULFATE [Suspect]
     Active Substance: VINCRISTINE SULFATE
     Indication: Product used for unknown indication
  11. SELINEXOR [Concomitant]
     Active Substance: SELINEXOR

REACTIONS (19)
  - Cardiac arrest [Unknown]
  - Cardiorenal syndrome [Unknown]
  - Haemophagocytic lymphohistiocytosis [Unknown]
  - Pulmonary embolism [Unknown]
  - Spinal cord infarction [Unknown]
  - Spinal cord ischaemia [Unknown]
  - Transient ischaemic attack [Unknown]
  - Cardiac failure congestive [Unknown]
  - Cerebrovascular accident [Unknown]
  - Renal failure [Unknown]
  - Progressive multifocal leukoencephalopathy [Unknown]
  - Myocardial infarction [Unknown]
  - Spinal column injury [Unknown]
  - Pleural effusion [Unknown]
  - Bacterial infection [Unknown]
  - Fungal infection [Unknown]
  - Nervous system disorder [Unknown]
  - Viral infection [Unknown]
  - Treatment failure [Unknown]
